FAERS Safety Report 10969828 (Version 2)
Quarter: 2015Q2

REPORT INFORMATION
  Report Type: Spontaneous
  Country: US (occurrence: US)
  Receive Date: 20150331
  Receipt Date: 20150417
  Transmission Date: 20150821
  Serious: Yes (Hospitalization)
  Sender: FDA-Public Use
  Company Number: US-PFIZER INC-2015055500

PATIENT
  Age: 85 Year
  Sex: Female

DRUGS (7)
  1. DIOVAN [Concomitant]
     Active Substance: VALSARTAN
     Dosage: 160 MG, 1X/DAY
  2. LIPITOR [Suspect]
     Active Substance: ATORVASTATIN CALCIUM
     Dosage: 40 MG, 1X/DAY
  3. INDAPAMIDE. [Concomitant]
     Active Substance: INDAPAMIDE
     Dosage: 2.5 MG, 1X/DAY
  4. PROLIA [Concomitant]
     Active Substance: DENOSUMAB
     Dosage: UNK
  5. METOPROLOL [Concomitant]
     Active Substance: METOPROLOL
     Dosage: 50 MG 1/4 IN AM 1/4 IN PM, 2X/DAY
  6. COUMADINE [Concomitant]
     Active Substance: WARFARIN SODIUM
     Dosage: 1 1/2-1 MG DAILY FOR 4 DAYS, 1 MG DAILY FOR 3 DAYS
  7. VITAMIN D [Concomitant]
     Active Substance: CHOLECALCIFEROL
     Dosage: 2000 MG, 1X/DAY

REACTIONS (4)
  - Articular calcification [Not Recovered/Not Resolved]
  - Breast calcifications [Not Recovered/Not Resolved]
  - Arthritis [Not Recovered/Not Resolved]
  - Blood calcium increased [Unknown]
